FAERS Safety Report 21783993 (Version 2)
Quarter: 2023Q1

REPORT INFORMATION
  Report Type: Spontaneous
  Country: JP (occurrence: None)
  Receive Date: 20221227
  Receipt Date: 20230131
  Transmission Date: 20230418
  Serious: Yes (Other)
  Sender: FDA-Public Use
  Company Number: 2022A415762

PATIENT
  Age: 79 Year
  Sex: Female

DRUGS (12)
  1. TEZSPIRE [Suspect]
     Active Substance: TEZEPELUMAB-EKKO
     Indication: Asthma
     Route: 058
     Dates: start: 20221217
  2. FASENRA [Suspect]
     Active Substance: BENRALIZUMAB
     Indication: Asthma
     Dosage: 30 MG EVERY TWO MONTHS
     Route: 058
  3. XOLAIR [Concomitant]
     Active Substance: OMALIZUMAB
     Indication: Asthma
     Dosage: DOSE UNKNOWN
     Route: 065
  4. XOLAIR [Concomitant]
     Active Substance: OMALIZUMAB
     Indication: Asthma
     Dosage: DOSE UNKNOWN
     Route: 065
  5. SPIRIVA [Concomitant]
     Active Substance: TIOTROPIUM BROMIDE MONOHYDRATE
     Dosage: DOSE UNKNOWN
     Route: 065
  6. MONTELUKAST [Concomitant]
     Active Substance: MONTELUKAST SODIUM
     Dosage: DOSE UNKNOWN
     Route: 065
  7. BILASTINE [Concomitant]
     Active Substance: BILASTINE
     Dosage: DOSE UNKNOWN
     Route: 065
  8. MINODRONIC ACID [Concomitant]
     Active Substance: MINODRONIC ACID
     Dosage: DOSE UNKNOWN
     Route: 065
  9. CLOPIDOGREL [Concomitant]
     Active Substance: CLOPIDOGREL BISULFATE
     Dosage: DOSE UNKNOWN
     Route: 065
  10. ESTAZOLAM [Concomitant]
     Active Substance: ESTAZOLAM
     Dosage: DOSE UNKNOWN
     Route: 065
  11. ZOLPIDEM TARTRATE [Concomitant]
     Active Substance: ZOLPIDEM TARTRATE
     Dosage: DOSE UNKNOWN
     Route: 065
  12. RIBOFLAVIN [Concomitant]
     Active Substance: RIBOFLAVIN
     Dosage: DOSE UNKNOWN
     Route: 065

REACTIONS (1)
  - Asthma [Recovered/Resolved]

NARRATIVE: CASE EVENT DATE: 20221219
